FAERS Safety Report 14839619 (Version 1)
Quarter: 2018Q2

REPORT INFORMATION
  Report Type: Spontaneous
  Country: US (occurrence: US)
  Receive Date: 20180502
  Receipt Date: 20180502
  Transmission Date: 20180711
  Serious: Yes (Death, Life-Threatening, Hospitalization)
  Sender: FDA-Public Use
  Company Number: US-SUN PHARMACEUTICAL INDUSTRIES LTD-2018US-166502

PATIENT
  Age: 62 Year
  Sex: Male

DRUGS (4)
  1. LUPRON [Suspect]
     Active Substance: LEUPROLIDE ACETATE
     Indication: PROSTATE CANCER METASTATIC
     Dosage: UNK
     Route: 065
  2. ZYTIGA [Suspect]
     Active Substance: ABIRATERONE ACETATE
     Indication: PROSTATE CANCER METASTATIC
     Dosage: UNK
     Route: 065
  3. PREDNISONE. [Suspect]
     Active Substance: PREDNISONE
     Indication: PROSTATE CANCER METASTATIC
     Dosage: UNK
     Route: 065
  4. ELIQUIS [Suspect]
     Active Substance: APIXABAN
     Indication: PROSTATE CANCER METASTATIC
     Dosage: UNK
     Route: 065

REACTIONS (11)
  - Fungal endocarditis [Fatal]
  - Acidosis [Fatal]
  - Multiple organ dysfunction syndrome [Fatal]
  - Bronchopulmonary aspergillosis [Fatal]
  - Sepsis [Fatal]
  - Ventricular tachycardia [Fatal]
  - Septic shock [Fatal]
  - Ischaemic hepatitis [Fatal]
  - Aspergilloma [Fatal]
  - Acute kidney injury [Fatal]
  - Pulseless electrical activity [Fatal]
